FAERS Safety Report 4731937-1 (Version None)
Quarter: 2005Q3

REPORT INFORMATION
  Report Type: 
  Country: None (occurrence: None)
  Receive Date: 20050802
  Receipt Date: 20050802
  Transmission Date: 20060218
  Serious: Yes (Hospitalization)
  Sender: FDA-Public Use
  Company Number: None

PATIENT
  Sex: Male
  Weight: 110.6 kg

DRUGS (14)
  1. IMATINIB MESYLATE 100MG CAPSULES, NOVARTIS [Suspect]
     Indication: GLIOBLASTOMA MULTIFORME
     Dosage: 400MG DAILY PO X 8 DAYS
     Route: 048
     Dates: start: 20050615, end: 20050622
  2. TEMOZOLOMIDE, SCHERING-PLOUGH [Suspect]
     Indication: GLIOBLASTOMA MULTIFORME
     Dosage: 325MG DAILY PO X 5 DAYS
     Route: 048
     Dates: start: 20050618, end: 20050622
  3. DECADRON [Concomitant]
  4. TEGRETOL [Concomitant]
  5. PROTONIX [Concomitant]
  6. POTASSIUM CHLORIDE [Concomitant]
  7. ALLEGRA [Concomitant]
  8. SINGULAIR [Concomitant]
  9. RITALIN [Concomitant]
  10. SEPTRA [Concomitant]
  11. LOVENOX [Concomitant]
  12. LASIX [Concomitant]
  13. ALBUTEROL [Concomitant]
  14. DUONEB [Concomitant]

REACTIONS (5)
  - COLON POLYPECTOMY [None]
  - COLONIC HAEMORRHAGE [None]
  - GASTROINTESTINAL HAEMORRHAGE [None]
  - PROCEDURAL SITE REACTION [None]
  - RECTAL HAEMORRHAGE [None]
